FAERS Safety Report 7126644-4 (Version None)
Quarter: 2010Q4

REPORT INFORMATION
  Report Type: 
  Country: None (occurrence: None)
  Receive Date: 20101129
  Receipt Date: 20101118
  Transmission Date: 20110411
  Serious: Yes (Other)
  Sender: FDA-Public Use
  Company Number: DE-ROCHE-744170

PATIENT
  Age: 72 Year
  Sex: Female

DRUGS (2)
  1. AVASTIN [Suspect]
     Indication: BREAST CANCER
     Dosage: PATIENT REVEIVED 4TH CYCLE BEVACIZUMAB.
     Route: 065
  2. CHEMOTHERAPY [Concomitant]
     Indication: BREAST CANCER
     Dosage: THE PATIENT RECEIVED 6 CYCLES.

REACTIONS (3)
  - CONFUSIONAL STATE [None]
  - SPEECH DISORDER [None]
  - VISUAL IMPAIRMENT [None]
